FAERS Safety Report 4841782-4 (Version None)
Quarter: 2005Q4

REPORT INFORMATION
  Report Type: 
  Country: None (occurrence: None)
  Receive Date: 20051130
  Receipt Date: 20051128
  Transmission Date: 20060501
  Serious: Yes (Hospitalization)
  Sender: FDA-Public Use
  Company Number: FR-ROCHE-426197

PATIENT
  Age: 69 Year
  Sex: Male

DRUGS (6)
  1. LOXEN LP [Suspect]
     Indication: HYPERTENSION
     Route: 048
  2. NITRODERM [Suspect]
     Route: 062
  3. SELOKEN [Suspect]
     Indication: HYPERTENSION
     Route: 048
  4. AMAREL [Suspect]
     Indication: DIABETES MELLITUS
     Route: 048
     Dates: end: 20050210
  5. NEXIUM [Suspect]
     Indication: OESOPHAGITIS
     Route: 048
  6. PLAVIX [Suspect]
     Route: 048
     Dates: end: 20050210

REACTIONS (6)
  - ANAEMIA [None]
  - DUODENITIS [None]
  - FUNGAL OESOPHAGITIS [None]
  - GASTROINTESTINAL HAEMORRHAGE [None]
  - GASTROOESOPHAGEAL REFLUX DISEASE [None]
  - HAEMATEMESIS [None]
